FAERS Safety Report 8369977-6 (Version None)
Quarter: 2012Q2

REPORT INFORMATION
  Report Type: 
  Country: None (occurrence: None)
  Receive Date: 20120518
  Receipt Date: 20120511
  Transmission Date: 20120825
  Serious: Yes (Hospitalization, Other)
  Sender: FDA-Public Use
  Company Number: US-INCYTE CORPORATION-2012IN000793

PATIENT
  Sex: Male

DRUGS (15)
  1. JAKAFI [Suspect]
     Indication: MYELOFIBROSIS
     Dosage: 20 MG, QD
     Route: 048
     Dates: end: 20120101
  2. VITAMIN B6 [Concomitant]
     Dosage: 100 MG, UNK
  3. VITAMIN B-12 [Concomitant]
     Dosage: 500 MCG, UNK
  4. NEPHROVITE [Concomitant]
     Dosage: 1 TAB, QD
  5. HYDROXYUREA [Concomitant]
     Dosage: 100 MG, BID
  6. JAKAFI [Suspect]
     Dosage: 20 MG, QD (ON DAYS OF DIALYSIS)
     Route: 048
     Dates: start: 20120404
  7. JAKAFI [Suspect]
     Dosage: 10 MG, QD
     Route: 048
     Dates: start: 20120404
  8. LIPITOR [Concomitant]
     Dosage: 10 MG, QD
  9. CARVEDILOL [Concomitant]
     Dosage: 3.125 MG, BID
  10. FOLIC ACID [Concomitant]
     Dosage: 400 MCG, QD
  11. PRILOSEC [Concomitant]
     Dosage: 40 MG, QD
  12. CALCIUM CARBONATE [Concomitant]
     Dosage: OTC TUMS WITH MEALS
  13. ASCORBIC ACID [Concomitant]
     Dosage: 100 MG, BID
  14. CALCIUM WITH VITAMIN D [Concomitant]
     Dosage: 1000, QD
  15. AVODART [Concomitant]
     Dosage: 0.05 MG, QD

REACTIONS (3)
  - CHEST PAIN [None]
  - GASTROINTESTINAL HAEMORRHAGE [None]
  - FULL BLOOD COUNT DECREASED [None]
